FAERS Safety Report 5325500-1 (Version None)
Quarter: 2007Q2

REPORT INFORMATION
  Report Type: 
  Country: None (occurrence: None)
  Receive Date: 20070515
  Receipt Date: 20070504
  Transmission Date: 20071010
  Serious: Yes (Other)
  Sender: FDA-Public Use
  Company Number: US-PFIZER INC-2004068650

PATIENT
  Sex: Male

DRUGS (1)
  1. VIAGRA [Suspect]
     Indication: ERECTILE DYSFUNCTION
     Route: 048
     Dates: start: 20030304, end: 20030803

REACTIONS (18)
  - BLINDNESS UNILATERAL [None]
  - CATARACT NUCLEAR [None]
  - CORNEAL DISORDER [None]
  - EYE IRRITATION [None]
  - IRIS TRANSILLUMINATION DEFECT [None]
  - LACRIMATION DECREASED [None]
  - OCULAR HYPERTENSION [None]
  - OPTIC DISC DISORDER [None]
  - OPTIC DISC VASCULAR DISORDER [None]
  - OPTIC ISCHAEMIC NEUROPATHY [None]
  - PAPILLOEDEMA [None]
  - PIGMENT DISPERSION SYNDROME [None]
  - RETINOPATHY HYPERTENSIVE [None]
  - VISION BLURRED [None]
  - VISUAL ACUITY REDUCED [None]
  - VISUAL DISTURBANCE [None]
  - VISUAL FIELD DEFECT [None]
  - VITREOUS DETACHMENT [None]
